FAERS Safety Report 18143330 (Version 1)
Quarter: 2020Q3

REPORT INFORMATION
  Report Type: Report from Study
  Country: CA (occurrence: CA)
  Receive Date: 20200812
  Receipt Date: 20200812
  Transmission Date: 20201103
  Serious: Yes (Other)
  Sender: FDA-Public Use
  Company Number: CA-HLS-202000118

PATIENT
  Age: 24 Year
  Sex: Male

DRUGS (6)
  1. BIPHENTIN [Concomitant]
     Active Substance: METHYLPHENIDATE
     Dosage: AM
     Route: 065
  2. CLOZARIL [Suspect]
     Active Substance: CLOZAPINE
     Route: 048
     Dates: start: 20170221, end: 20200224
  3. INVEGA SUSTENNA [Concomitant]
     Active Substance: PALIPERIDONE PALMITATE
     Dosage: 150 MG/1.5ML
     Route: 030
  4. APO?LORAZEPAM [Concomitant]
     Active Substance: LORAZEPAM
     Route: 065
  5. CLOZARIL [Suspect]
     Active Substance: CLOZAPINE
     Dosage: 2 TABLETS (25 MG) EACH MORNING AND AT BEDTIME. ?1 TABLET (100MG) AT BEDTIME.
     Route: 048
     Dates: start: 202006
  6. APO?OLANZAPINE [Concomitant]
     Active Substance: OLANZAPINE
     Dosage: AT BEDTIME
     Route: 065

REACTIONS (12)
  - Neutrophil count [Unknown]
  - Blood prolactin increased [Unknown]
  - White blood cell count increased [Unknown]
  - Schizophrenia [Unknown]
  - Fatigue [Unknown]
  - Dizziness [Recovered/Resolved]
  - Tachycardia [Unknown]
  - Blood glucose [Unknown]
  - Alanine aminotransferase increased [Unknown]
  - Blood pressure increased [Recovered/Resolved]
  - Total cholesterol/HDL ratio [Unknown]
  - Blood pressure orthostatic [Unknown]

NARRATIVE: CASE EVENT DATE: 20200603
